FAERS Safety Report 6746497-3 (Version None)
Quarter: 2010Q2

REPORT INFORMATION
  Report Type: 
  Country: None (occurrence: None)
  Receive Date: 20100528
  Receipt Date: 20091210
  Transmission Date: 20101027
  Serious: No
  Sender: FDA-Public Use
  Company Number: US-ASTRAZENECA-2009SE32656

PATIENT
  Age: 54 Year
  Sex: Female

DRUGS (2)
  1. PRILOSEC OTC [Suspect]
     Route: 048
     Dates: start: 20091204
  2. ANTIHYPERTENSIVES [Concomitant]
     Dosage: UNKNOWN

REACTIONS (1)
  - DYSPEPSIA [None]
